FAERS Safety Report 9685198 (Version 1)
Quarter: 2013Q4

REPORT INFORMATION
  Report Type: Spontaneous
  Country: US (occurrence: None)
  Receive Date: 20131112
  Receipt Date: 20131112
  Transmission Date: 20140711
  Serious: Yes (Disabling)
  Sender: FDA-Public Use
  Company Number: None

PATIENT
  Sex: Female
  Weight: 58.97 kg

DRUGS (8)
  1. PROLIA [Suspect]
     Indication: OSTEOPOROSIS
     Dosage: EVERY 6 MONTHS
     Dates: start: 20130330
  2. LEVOTHYROXINE 75 MG [Concomitant]
  3. LIISNOPRIL 2.5 MG [Concomitant]
  4. MELOXICAM 7.5 MG TAB [Concomitant]
  5. CALCIMATE COMPLETE [Concomitant]
  6. VIT D3 (10,000 IU) [Concomitant]
  7. ASPIRIN [Concomitant]
  8. VIT C [Concomitant]

REACTIONS (4)
  - Pain in jaw [None]
  - Arthralgia [None]
  - Pain in extremity [None]
  - Myalgia [None]
